FAERS Safety Report 7367251-8 (Version None)
Quarter: 2011Q1

REPORT INFORMATION
  Report Type: 
  Country: None (occurrence: None)
  Receive Date: 20110311
  Receipt Date: 20110303
  Transmission Date: 20110831
  Serious: Yes (Hospitalization)
  Sender: FDA-Public Use
  Company Number: AXJPN-10-0556

PATIENT
  Age: 49 Year
  Sex: Female

DRUGS (4)
  1. MYSLEE  (ZOLP IDEM TARTRATE) [Concomitant]
  2. ABRAXANE [Suspect]
     Indication: BREAST CANCER
     Dosage: (239 MG)
     Dates: start: 20100825
  3. ISODINE GARGLE [Concomitant]
  4. ZOMETA [Concomitant]

REACTIONS (8)
  - ALANINE AMINOTRANSFERASE INCREASED [None]
  - BLOOD ALKALINE PHOSPHATASE INCREASED [None]
  - BLOOD LACTATE DEHYDROGENASE INCREASED [None]
  - GAMMA-GLUTAMYLTRANSFERASE INCREASED [None]
  - BLOOD BILIRUBIN INCREASED [None]
  - MALAISE [None]
  - ASPARTATE AMINOTRANSFERASE INCREASED [None]
  - LIVER DISORDER [None]
